FAERS Safety Report 9131190 (Version 2)
Quarter: 2013Q1

REPORT INFORMATION
  Report Type: Spontaneous
  Country: US (occurrence: AT)
  Receive Date: 20130301
  Receipt Date: 20130308
  Transmission Date: 20140127
  Serious: Yes (Other)
  Sender: FDA-Public Use
  Company Number: AT-PFIZER INC-2013067901

PATIENT
  Age: 79 Year
  Sex: Male

DRUGS (2)
  1. SILDENAFIL CITRATE [Suspect]
     Dosage: 50 MG, UNK
     Route: 048
  2. VENOSTASIN [Concomitant]
     Indication: THROMBOSIS PROPHYLAXIS
     Dosage: 50 MG, DAILY

REACTIONS (5)
  - Nystagmus [Recovered/Resolved]
  - Tinnitus [Recovered/Resolved]
  - Vertigo [Recovered/Resolved]
  - Vomiting [Recovered/Resolved]
  - Nausea [Recovered/Resolved]
